FAERS Safety Report 22033090 (Version 1)
Quarter: 2023Q1

REPORT INFORMATION
  Report Type: Spontaneous
  Country: US (occurrence: None)
  Receive Date: 20230222
  Receipt Date: 20230222
  Transmission Date: 20230417
  Serious: No
  Sender: FDA-Public Use
  Company Number: None

PATIENT
  Age: 27 Year
  Sex: Female
  Weight: 65.25 kg

DRUGS (6)
  1. VYVANSE [Suspect]
     Active Substance: LISDEXAMFETAMINE DIMESYLATE
     Indication: Attention deficit hyperactivity disorder
     Dosage: OTHER QUANTITY : 30 CAPSULE(S);?FREQUENCY : DAILY;?
     Route: 048
     Dates: start: 20230205, end: 20230221
  2. AMPHETAMINE [Concomitant]
  3. LAMOTRIGINE [Concomitant]
     Active Substance: LAMOTRIGINE
  4. ESCITALOPRAM [Concomitant]
     Active Substance: ESCITALOPRAM OXALATE
  5. Vestura Birth Control [Concomitant]
  6. LEVOCETIRIZINE [Concomitant]

REACTIONS (9)
  - Drug ineffective [None]
  - Intentional product use issue [None]
  - Lethargy [None]
  - Feeling abnormal [None]
  - Fatigue [None]
  - Disturbance in attention [None]
  - Impaired quality of life [None]
  - Memory impairment [None]
  - Suspected product quality issue [None]

NARRATIVE: CASE EVENT DATE: 20230205
